FAERS Safety Report 26054873 (Version 1)
Quarter: 2025Q4

REPORT INFORMATION
  Report Type: Spontaneous
  Country: EU (occurrence: EU)
  Receive Date: 20251117
  Receipt Date: 20251117
  Transmission Date: 20260117
  Serious: Yes (Death)
  Sender: MYLAN
  Company Number: None

PATIENT
  Age: 26 Year
  Sex: Female

DRUGS (20)
  1. PAROXETINE [Suspect]
     Active Substance: PAROXETINE
     Indication: Product used for unknown indication
     Dosage: UNKNOWN
  2. PAROXETINE [Suspect]
     Active Substance: PAROXETINE
     Dosage: UNKNOWN
     Route: 048
  3. PAROXETINE [Suspect]
     Active Substance: PAROXETINE
     Dosage: UNKNOWN
     Route: 048
  4. PAROXETINE [Suspect]
     Active Substance: PAROXETINE
     Dosage: UNKNOWN
  5. QUETIAPINE [Suspect]
     Active Substance: QUETIAPINE
     Indication: Product used for unknown indication
     Dosage: UNKNOWN
  6. QUETIAPINE [Suspect]
     Active Substance: QUETIAPINE
     Dosage: UNKNOWN
     Route: 048
  7. QUETIAPINE [Suspect]
     Active Substance: QUETIAPINE
     Dosage: UNKNOWN
     Route: 048
  8. QUETIAPINE [Suspect]
     Active Substance: QUETIAPINE
     Dosage: UNKNOWN
  9. METHADONE [Suspect]
     Active Substance: METHADONE HYDROCHLORIDE
     Indication: Product used for unknown indication
     Dosage: UNKNOWN
  10. METHADONE [Suspect]
     Active Substance: METHADONE HYDROCHLORIDE
     Dosage: UNKNOWN
     Route: 065
  11. METHADONE [Suspect]
     Active Substance: METHADONE HYDROCHLORIDE
     Dosage: UNKNOWN
     Route: 065
  12. METHADONE [Suspect]
     Active Substance: METHADONE HYDROCHLORIDE
     Dosage: UNKNOWN
  13. COCAINE [Suspect]
     Active Substance: COCAINE
     Indication: Product used for unknown indication
     Dosage: UNKNOWN
  14. COCAINE [Suspect]
     Active Substance: COCAINE
     Dosage: UNKNOWN
     Route: 065
  15. COCAINE [Suspect]
     Active Substance: COCAINE
     Dosage: UNKNOWN
     Route: 065
  16. COCAINE [Suspect]
     Active Substance: COCAINE
     Dosage: UNKNOWN
  17. DIAZEPAM [Suspect]
     Active Substance: DIAZEPAM
     Indication: Product used for unknown indication
     Dosage: UNKNOWN
  18. DIAZEPAM [Suspect]
     Active Substance: DIAZEPAM
     Dosage: UNKNOWN
     Route: 048
  19. DIAZEPAM [Suspect]
     Active Substance: DIAZEPAM
     Dosage: UNKNOWN
     Route: 048
  20. DIAZEPAM [Suspect]
     Active Substance: DIAZEPAM
     Dosage: UNKNOWN

REACTIONS (3)
  - Aspiration [Fatal]
  - Cardio-respiratory arrest [Fatal]
  - Drug abuse [Fatal]
